FAERS Safety Report 16536583 (Version 1)
Quarter: 2019Q3

REPORT INFORMATION
  Report Type: Spontaneous
  Country: US (occurrence: US)
  Receive Date: 20190706
  Receipt Date: 20190706
  Transmission Date: 20191004
  Serious: No
  Sender: FDA-Public Use
  Company Number: US-AUROBINDO-AUR-APL-2019-019172

PATIENT

DRUGS (1)
  1. GUAIFENESIN AND DEXTROMETHORPHAN HYDROBROMIDE 1200MG/60MG [Suspect]
     Active Substance: DEXTROMETHORPHAN HYDROBROMIDE\GUAIFENESIN
     Indication: NASOPHARYNGITIS
     Dosage: 1 DOSAGE FORM, DAILY
     Route: 048
     Dates: start: 20190331, end: 20190331

REACTIONS (2)
  - Dizziness [Not Recovered/Not Resolved]
  - Nausea [Not Recovered/Not Resolved]

NARRATIVE: CASE EVENT DATE: 20190331
